FAERS Safety Report 6931762-7 (Version None)
Quarter: 2010Q3

REPORT INFORMATION
  Report Type: 
  Country: None (occurrence: None)
  Receive Date: 20100819
  Receipt Date: 20100810
  Transmission Date: 20110219
  Serious: Yes (Other)
  Sender: FDA-Public Use
  Company Number: JP-PFIZER INC-2010100261

PATIENT
  Age: 60 Year
  Sex: Male

DRUGS (6)
  1. LIPITOR [Suspect]
     Indication: HYPERLIPIDAEMIA
     Dosage: 10 MG, 1X/DAY, UID
     Route: 048
     Dates: start: 20100707, end: 20100709
  2. DEPAS [Concomitant]
     Dosage: UNK
  3. DILTIAZEM HYDROCHLORIDE [Concomitant]
     Dosage: UNK
  4. AZUCURENIN S [Concomitant]
     Dosage: UNK
  5. IMIDAPRIL HYDROCHLORIDE [Concomitant]
     Dosage: UNK
  6. MEVALOTIN [Concomitant]
     Dosage: 5 MG, 2X/DAY
     Dates: start: 20010101

REACTIONS (2)
  - FEELING ABNORMAL [None]
  - GAIT DISTURBANCE [None]
